FAERS Safety Report 11618630 (Version 1)
Quarter: 2015Q4

REPORT INFORMATION
  Report Type: Report from Study
  Country: JP (occurrence: JP)
  Receive Date: 20151012
  Receipt Date: 20151012
  Transmission Date: 20160304
  Serious: Yes (Other)
  Sender: FDA-Public Use
  Company Number: JP-ROCHE-1643640

PATIENT
  Age: 55 Year
  Sex: Female

DRUGS (7)
  1. RITUXIMAB [Suspect]
     Active Substance: RITUXIMAB
     Dosage: CYCLE 3 DAY 1
     Route: 042
     Dates: start: 20120106
  2. CYTARABINE. [Suspect]
     Active Substance: CYTARABINE
     Indication: DIFFUSE LARGE B-CELL LYMPHOMA
     Dosage: 2G/M2 EVERY 12 HOURS (2 DOSES) ON DAY 2 OF DOSING CYCLE
     Route: 065
  3. RITUXIMAB [Suspect]
     Active Substance: RITUXIMAB
     Dosage: CYCLE 2 DAY 1
     Route: 042
     Dates: start: 20111205
  4. RITUXIMAB [Suspect]
     Active Substance: RITUXIMAB
     Dosage: CYCLE 1 DAY 8
     Route: 042
     Dates: start: 20111116
  5. CISPLATIN. [Suspect]
     Active Substance: CISPLATIN
     Indication: DIFFUSE LARGE B-CELL LYMPHOMA
     Dosage: 100 MG/M2/24HRS CONTINUOUS ON DAY 1 OF DOSING CYCLE
     Route: 065
  6. RITUXIMAB [Suspect]
     Active Substance: RITUXIMAB
     Indication: DIFFUSE LARGE B-CELL LYMPHOMA
     Dosage: CYCLE 1 DAY 1
     Route: 042
     Dates: start: 20111108
  7. DEXAMETHASONE. [Suspect]
     Active Substance: DEXAMETHASONE
     Indication: DIFFUSE LARGE B-CELL LYMPHOMA
     Dosage: ON DAYS 1, 2, 3 AND 4 OF DOSAGE CYCLE
     Route: 065

REACTIONS (3)
  - Hyperuricaemia [Recovered/Resolved]
  - Lymphopenia [Recovered/Resolved]
  - Leukopenia [Recovered/Resolved]

NARRATIVE: CASE EVENT DATE: 20111109
